FAERS Safety Report 18430254 (Version 1)
Quarter: 2020Q4

REPORT INFORMATION
  Report Type: Spontaneous
  Country: AU (occurrence: AU)
  Receive Date: 20201027
  Receipt Date: 20201027
  Transmission Date: 20210114
  Serious: Yes (Other)
  Sender: FDA-Public Use
  Company Number: AU-SUN PHARMACEUTICAL INDUSTRIES LTD-2020RR-265403

PATIENT
  Age: 33 Year
  Sex: Female

DRUGS (2)
  1. CARBOPLATIN. [Suspect]
     Active Substance: CARBOPLATIN
     Indication: NON-SMALL CELL LUNG CANCER
     Dosage: UNK, 1 DOSE/3 WEEKS
     Route: 065
     Dates: start: 201905
  2. PEMETREXED. [Suspect]
     Active Substance: PEMETREXED
     Indication: NON-SMALL CELL LUNG CANCER
     Dosage: UNK, 1 DOSE/3 WEEKS
     Route: 065
     Dates: start: 201905

REACTIONS (3)
  - Condition aggravated [Unknown]
  - Disease recurrence [Unknown]
  - Therapy partial responder [Unknown]
